FAERS Safety Report 5627873-9 (Version None)
Quarter: 2008Q1

REPORT INFORMATION
  Report Type: 
  Country: None (occurrence: None)
  Receive Date: 20080215
  Receipt Date: 20080207
  Transmission Date: 20080703
  Serious: Yes (Hospitalization)
  Sender: FDA-Public Use
  Company Number: US-ABBOTT-08P-163-0437432-00

PATIENT
  Sex: Female

DRUGS (4)
  1. DEPAKOTE [Suspect]
     Indication: BIPOLAR DISORDER
     Dosage: 1200MG AM AND 200MG EVERY PM
     Route: 048
     Dates: start: 20060801
  2. ARIPIPRAZOLE [Concomitant]
     Indication: BIPOLAR DISORDER
     Dates: start: 20080101
  3. LANTUS [Concomitant]
     Indication: DIABETES MELLITUS
     Route: 058
  4. METFORMIN HCL [Concomitant]
     Indication: DIABETES MELLITUS
     Route: 048

REACTIONS (4)
  - ANOREXIA [None]
  - LETHARGY [None]
  - SOMNOLENCE [None]
  - STUPOR [None]
